FAERS Safety Report 23833473 (Version 1)
Quarter: 2024Q2

REPORT INFORMATION
  Report Type: Spontaneous
  Country: US (occurrence: US)
  Receive Date: 20240508
  Receipt Date: 20240508
  Transmission Date: 20240716
  Serious: No
  Sender: FDA-Public Use
  Company Number: US-JNJFOC-20240503103

PATIENT
  Age: 9 Year
  Sex: Female
  Weight: 23.608 kg

DRUGS (2)
  1. REMICADE [Suspect]
     Active Substance: INFLIXIMAB
     Indication: Inflammatory bowel disease
     Dosage: 250-300MG
     Route: 041
     Dates: start: 20240411
  2. REMICADE [Suspect]
     Active Substance: INFLIXIMAB
     Indication: Crohn^s disease

REACTIONS (3)
  - Hiccups [Unknown]
  - Eructation [Unknown]
  - Product dose omission issue [Unknown]
